FAERS Safety Report 26200671 (Version 1)
Quarter: 2025Q4

REPORT INFORMATION
  Report Type: Report from Study
  Country: US (occurrence: US)
  Receive Date: 20251225
  Receipt Date: 20251225
  Transmission Date: 20260117
  Serious: Yes (Other)
  Sender: ABBVIE
  Company Number: US-ABBVIE-6604752

PATIENT
  Age: 77 Year
  Sex: Male

DRUGS (1)
  1. SKYRIZI [Suspect]
     Active Substance: RISANKIZUMAB-RZAA
     Indication: Psoriasis
     Route: 058
     Dates: start: 20240228

REACTIONS (5)
  - Chemotherapy [Recovering/Resolving]
  - Weight decreased [Unknown]
  - Dizziness [Unknown]
  - Oral discomfort [Unknown]
  - Radiotherapy [Recovering/Resolving]

NARRATIVE: CASE EVENT DATE: 20250101
